FAERS Safety Report 6540404-4 (Version None)
Quarter: 2010Q1

REPORT INFORMATION
  Report Type: 
  Country: None (occurrence: None)
  Receive Date: 20100115
  Receipt Date: 20100112
  Transmission Date: 20100710
  Serious: Yes (Life-Threatening, Hospitalization, Other)
  Sender: FDA-Public Use
  Company Number: MX-GILEAD-2010-0026464

PATIENT
  Sex: Male
  Weight: 63.56 kg

DRUGS (8)
  1. TRUVADA [Suspect]
     Indication: HIV INFECTION
     Route: 048
     Dates: start: 20091219
  2. BLINDED MARAVIROC [Suspect]
     Indication: HIV INFECTION
     Route: 048
     Dates: start: 20091219
  3. EFAVIRENZ [Suspect]
     Indication: HIV INFECTION
     Dates: start: 20091219
  4. BACTRIM F [Concomitant]
     Dates: start: 20091117
  5. VITAMIN B COMPLEX CAP [Concomitant]
     Dates: start: 20091212
  6. AZITROCIN [Concomitant]
     Dates: start: 20091210
  7. ISONIAZID [Concomitant]
     Dates: start: 20091210
  8. RIFAMPIN [Concomitant]
     Dates: start: 20091210

REACTIONS (4)
  - HYPONATRAEMIA [None]
  - LETHARGY [None]
  - NAUSEA [None]
  - SEPTIC SHOCK [None]
